FAERS Safety Report 24084299 (Version 1)
Quarter: 2024Q3

REPORT INFORMATION
  Report Type: Spontaneous
  Country: US (occurrence: None)
  Receive Date: 20240711
  Receipt Date: 20240711
  Transmission Date: 20241016
  Serious: No
  Sender: Public
  Company Number: None

PATIENT
  Age: 50 Year
  Sex: Male
  Weight: 63 kg

DRUGS (1)
  1. TERBINAFINE [Suspect]
     Active Substance: TERBINAFINE
     Indication: Onychomycosis
     Dosage: 1 TABLET DAILY ORAL
     Route: 048
     Dates: start: 20240323, end: 20240525

REACTIONS (3)
  - Ageusia [None]
  - Therapy cessation [None]
  - Hypophagia [None]

NARRATIVE: CASE EVENT DATE: 20240503
